FAERS Safety Report 11632995 (Version 1)
Quarter: 2015Q4

REPORT INFORMATION
  Report Type: Spontaneous
  Country: US (occurrence: US)
  Receive Date: 20151015
  Receipt Date: 20151015
  Transmission Date: 20160304
  Serious: Yes (Death, Hospitalization)
  Sender: FDA-Public Use
  Company Number: US-SMITH AND NEPHEW, INC-2015SMT00395

PATIENT
  Age: 77 Year
  Sex: Female

DRUGS (1)
  1. REGRANEX [Suspect]
     Active Substance: BECAPLERMIN
     Indication: WOUND
     Dosage: UNK
     Route: 061
     Dates: start: 20150904, end: 2015

REACTIONS (3)
  - Death [Fatal]
  - Pneumonia [Unknown]
  - Diabetic complication [Unknown]

NARRATIVE: CASE EVENT DATE: 2015
